FAERS Safety Report 6507543-5 (Version None)
Quarter: 2009Q4

REPORT INFORMATION
  Report Type: 
  Country: None (occurrence: None)
  Receive Date: 20091221
  Receipt Date: 20091214
  Transmission Date: 20100525
  Serious: Yes (Death)
  Sender: FDA-Public Use
  Company Number: US-CELGENEUS-163-20785-09011558

PATIENT
  Sex: Male

DRUGS (2)
  1. THALOMID [Suspect]
     Indication: MULTIPLE MYELOMA
     Route: 048
     Dates: start: 20081213, end: 20090101
  2. THALOMID [Suspect]
     Route: 048
     Dates: start: 20080827, end: 20081101

REACTIONS (1)
  - BRONCHIAL CARCINOMA [None]
